FAERS Safety Report 5091510-5 (Version None)
Quarter: 2006Q3

REPORT INFORMATION
  Report Type: 
  Country: None (occurrence: None)
  Receive Date: 20060824
  Receipt Date: 20060814
  Transmission Date: 20061208
  Serious: Yes (Hospitalization)
  Sender: FDA-Public Use
  Company Number: Q06-043

PATIENT
  Age: 62 Year
  Sex: Female
  Weight: 69.1735 kg

DRUGS (10)
  1. VELCADE [Suspect]
     Indication: MULTIPLE MYELOMA
     Dosage: D1, 4, 8 + 11 IVP
     Route: 042
     Dates: start: 20060703
  2. VELCADE [Suspect]
     Indication: MULTIPLE MYELOMA
     Dosage: D1, 4, 8 + 11 IVP
     Route: 042
     Dates: start: 20060707
  3. VELCADE [Suspect]
     Indication: MULTIPLE MYELOMA
     Dosage: D1, 4, 8 + 11 IVP
     Route: 042
     Dates: start: 20060710
  4. SAMARIUM [Suspect]
     Indication: MULTIPLE MYELOMA
     Dosage: D3 IV
     Route: 042
     Dates: start: 20060706
  5. COUMADIN [Concomitant]
  6. LIPITOR [Concomitant]
  7. ESTERASE [Concomitant]
  8. LIDODERM [Concomitant]
  9. ALBUTEROL [Concomitant]
  10. NEXIUM [Concomitant]

REACTIONS (1)
  - APPENDICITIS [None]
